FAERS Safety Report 6523172-1 (Version None)
Quarter: 2009Q4

REPORT INFORMATION
  Report Type: 
  Country: None (occurrence: None)
  Receive Date: 20091222
  Receipt Date: 20091211
  Transmission Date: 20100525
  Serious: Yes (Hospitalization)
  Sender: FDA-Public Use
  Company Number: URSO-2009-152

PATIENT
  Age: 15 Year
  Sex: Male

DRUGS (4)
  1. URSO 250 [Suspect]
     Indication: AUTOIMMUNE HEPATITIS
     Dosage: ORAL
     Route: 048
     Dates: start: 19930101
  2. IMURAN [Suspect]
     Indication: AUTOIMMUNE HEPATITIS
     Dosage: 50MG ORAL ; ORAL
     Route: 048
     Dates: start: 19930101, end: 20040101
  3. IMURAN [Suspect]
     Indication: AUTOIMMUNE HEPATITIS
     Dosage: 50MG ORAL ; ORAL
     Route: 048
     Dates: start: 20080101
  4. PREDNISOLONE [Concomitant]

REACTIONS (10)
  - BILE DUCT CANCER STAGE II [None]
  - BILE DUCT STONE [None]
  - CHOLANGITIS SCLEROSING [None]
  - ENTERITIS [None]
  - GALLBLADDER ENLARGEMENT [None]
  - HEPATIC ATROPHY [None]
  - OSTEOPOROSIS [None]
  - PANCYTOPENIA [None]
  - SPLENOMEGALY [None]
  - VARICES OESOPHAGEAL [None]
